FAERS Safety Report 15344744 (Version 2)
Quarter: 2018Q3

REPORT INFORMATION
  Report Type: Report from Study
  Country: None (occurrence: BE)
  Receive Date: 20180903
  Receipt Date: 20180905
  Transmission Date: 20181010
  Serious: No
  Sender: FDA-Public Use
  Company Number: BE-ABBVIE-18S-013-2450617-00

PATIENT
  Sex: Male

DRUGS (4)
  1. DUODOPA [Suspect]
     Active Substance: CARBIDOPA\LEVODOPA
     Indication: PARKINSON^S DISEASE
     Dosage: NOT REPORTED
     Route: 050
     Dates: start: 20081208, end: 20081210
  2. DUODOPA [Suspect]
     Active Substance: CARBIDOPA\LEVODOPA
     Dosage: MD= 8ML??CD= 4ML/HR DURING 16HRS ??ED= 3ML
     Route: 050
     Dates: start: 20081210, end: 20081229
  3. DUODOPA [Suspect]
     Active Substance: CARBIDOPA\LEVODOPA
     Dosage: DOSES CONTINUOUSLY MONITORED AND ADAPTED
     Route: 050
     Dates: start: 20081229, end: 20170912
  4. DUODOPA [Suspect]
     Active Substance: CARBIDOPA\LEVODOPA
     Dosage: MD= 1.2ML??CD= 3.1ML/HR DURING 16HRS ??ED= 0.8ML
     Route: 050
     Dates: start: 20170912

REACTIONS (2)
  - Incorrect dose administered [Unknown]
  - Device occlusion [Unknown]
